FAERS Safety Report 10133797 (Version 1)
Quarter: 2014Q2

REPORT INFORMATION
  Report Type: Spontaneous
  Country: US (occurrence: US)
  Receive Date: 20140428
  Receipt Date: 20140428
  Transmission Date: 20141212
  Serious: No
  Sender: FDA-Public Use
  Company Number: US-009507513-1404USA012836

PATIENT
  Sex: Male

DRUGS (4)
  1. CLARITIN CHEWABLE TABLETS [Suspect]
     Indication: RHINORRHOEA
     Dosage: UNK, UNKNOWN
     Route: 048
  2. CLARITIN CHEWABLE TABLETS [Suspect]
     Indication: LACRIMATION INCREASED
  3. CLARITIN CHEWABLE TABLETS [Suspect]
     Indication: UPPER RESPIRATORY TRACT CONGESTION
  4. CLARITIN CHEWABLE TABLETS [Suspect]
     Indication: HYPERSENSITIVITY

REACTIONS (2)
  - Somnolence [Unknown]
  - Fatigue [Unknown]
